FAERS Safety Report 25527442 (Version 1)
Quarter: 2025Q3

REPORT INFORMATION
  Report Type: Spontaneous
  Country: GB (occurrence: GB)
  Receive Date: 20250708
  Receipt Date: 20250708
  Transmission Date: 20251021
  Serious: Yes (Other)
  Sender: DEXCEL LTD.
  Company Number: None

PATIENT
  Age: 57 Year
  Sex: Male
  Weight: 92 kg

DRUGS (9)
  1. OMEPRAZOLE [Suspect]
     Active Substance: OMEPRAZOLE
     Dosage: ...HALF AN HOUR BEFORE FOOD
     Dates: start: 20241206, end: 20250703
  2. GLYCERYL TRINITRATEGLYCERYL TRINITRATE (Specific Substance SUB6220) [Concomitant]
     Indication: Ill-defined disorder
     Dates: start: 20250429, end: 20250527
  3. MOMETASONE [Concomitant]
     Active Substance: MOMETASONE
     Indication: Ill-defined disorder
     Dates: start: 20250508, end: 20250605
  4. HYOSCINE BUTYLBROMIDEHYOSCINE BUTYLBROMIDE (Specific Substance Vari... [Concomitant]
     Indication: Ill-defined disorder
     Dates: start: 20250625, end: 20250702
  5. FAMOTIDINEFAMOTIDINE (Specific Substance SUB5582) [Concomitant]
     Indication: Ill-defined disorder
     Dates: start: 20250703
  6. ACIDEX ADVANCEACIDEX (Specific MP Group PGR5424082) [Concomitant]
     Indication: Ill-defined disorder
     Dates: start: 20240522
  7. CANDESARTAN [Concomitant]
     Active Substance: CANDESARTAN
     Indication: Ill-defined disorder
     Dates: start: 20240522
  8. ASPIRIN [Concomitant]
     Active Substance: ASPIRIN
     Indication: Ill-defined disorder
     Dates: start: 20250411
  9. INCLISIRAN [Concomitant]
     Active Substance: INCLISIRAN
     Indication: Ill-defined disorder
     Dates: start: 20250501

REACTIONS (3)
  - Pain [Not Recovered/Not Resolved]
  - Dysgeusia [Unknown]
  - Diarrhoea [Unknown]
